FAERS Safety Report 5499196-2 (Version None)
Quarter: 2007Q4

REPORT INFORMATION
  Report Type: 
  Country: None (occurrence: None)
  Receive Date: 20071026
  Receipt Date: 20071019
  Transmission Date: 20080405
  Serious: Yes (Hospitalization)
  Sender: FDA-Public Use
  Company Number: FR-AVENTIS-200713351FR

PATIENT
  Age: 75 Year
  Sex: Male

DRUGS (6)
  1. LASIX [Suspect]
     Route: 048
     Dates: start: 20060404
  2. HEPARINE CALCIQUE [Suspect]
     Route: 058
     Dates: start: 20060327, end: 20060406
  3. HEPARINE SODIQUE [Suspect]
     Route: 058
     Dates: start: 20060327, end: 20060406
  4. KARDEGIC                           /00002703/ [Suspect]
     Route: 048
     Dates: start: 20060401
  5. ELISOR [Suspect]
     Route: 048
     Dates: start: 20060401
  6. CORDARONE [Suspect]
     Route: 048
     Dates: start: 20060330

REACTIONS (1)
  - THROMBOCYTOPENIA [None]
